FAERS Safety Report 18590977 (Version 2)
Quarter: 2020Q4

REPORT INFORMATION
  Report Type: Spontaneous
  Country: FR (occurrence: FR)
  Receive Date: 20201208
  Receipt Date: 20201211
  Transmission Date: 20210114
  Serious: Yes (Death, Other)
  Sender: FDA-Public Use
  Company Number: FR-BAYER-2020-262558

PATIENT
  Age: 55 Year
  Sex: Male

DRUGS (2)
  1. NEXAVAR [Suspect]
     Active Substance: SORAFENIB
     Indication: HEPATOCELLULAR CARCINOMA
     Dosage: 800 MG, QD
     Route: 048
     Dates: start: 201610, end: 201707
  2. STIVARGA [Suspect]
     Active Substance: REGORAFENIB
     Indication: HEPATOCELLULAR CARCINOMA
     Dosage: 160 MG
     Route: 048
     Dates: start: 201708, end: 201907

REACTIONS (8)
  - Metastases to bone [None]
  - Alopecia [None]
  - Exophthalmos [None]
  - Metastases to eye [None]
  - Diarrhoea [None]
  - Hepatocellular carcinoma [None]
  - Palmar-plantar erythrodysaesthesia syndrome [None]
  - Hepatocellular carcinoma [None]

NARRATIVE: CASE EVENT DATE: 201707
